FAERS Safety Report 24559151 (Version 1)
Quarter: 2024Q4

REPORT INFORMATION
  Report Type: Spontaneous
  Country: CN (occurrence: CN)
  Receive Date: 20241029
  Receipt Date: 20241029
  Transmission Date: 20250115
  Serious: Yes (Hospitalization)
  Sender: EMD SERONO INC
  Company Number: CN-Merck Healthcare KGaA-2024055943

PATIENT
  Age: 29 Year
  Sex: Female
  Weight: 68 kg

DRUGS (5)
  1. LUVERIS [Suspect]
     Active Substance: LUTROPIN ALFA
     Indication: Ovulation induction
     Route: 058
     Dates: start: 20241003, end: 20241005
  2. UROFOLLITROPIN [Suspect]
     Active Substance: UROFOLLITROPIN
     Indication: Ovulation induction
     Route: 030
     Dates: start: 20240930, end: 20241003
  3. UROFOLLITROPIN [Suspect]
     Active Substance: UROFOLLITROPIN
     Route: 030
     Dates: start: 20241004, end: 20241004
  4. CHORIONIC GONADOTROPIN [Suspect]
     Active Substance: CHORIOGONADOTROPIN ALFA
     Indication: Ovulation induction
     Route: 030
     Dates: start: 20241005, end: 20241005
  5. SODIUM CHLORIDE [Concomitant]
     Active Substance: SODIUM CHLORIDE
     Indication: Vehicle solution use
     Route: 030
     Dates: start: 20241005, end: 20241005

REACTIONS (1)
  - Ovarian hyperstimulation syndrome [Recovering/Resolving]

NARRATIVE: CASE EVENT DATE: 20241013
